FAERS Safety Report 24369485 (Version 1)
Quarter: 2024Q3

REPORT INFORMATION
  Report Type: Spontaneous
  Country: NL (occurrence: NL)
  Receive Date: 20240927
  Receipt Date: 20240927
  Transmission Date: 20241017
  Serious: Yes (Disabling)
  Sender: BIOCON
  Company Number: None

PATIENT
  Age: 56 Year
  Sex: Female
  Weight: 73 kg

DRUGS (2)
  1. ROSUVASTATIN [Suspect]
     Active Substance: ROSUVASTATIN\ROSUVASTATIN CALCIUM
     Indication: Hypercholesterolaemia
     Dosage: MEDICINE PRESCRIBED BY DOCTOR: YES?1X PER DAY
     Dates: start: 20231101, end: 20240201
  2. CARBASPIRIN CALCIUM [Concomitant]
     Active Substance: CARBASPIRIN CALCIUM
     Indication: Product used for unknown indication
     Dosage: ASCAL BRISPER CARDIO-NEURO EFFERVESCENT TABLET, 100 MG (MILLIGRAM)

REACTIONS (6)
  - Muscle spasms [Recovered/Resolved]
  - Affect lability [Recovered/Resolved]
  - Memory impairment [Recovered/Resolved]
  - Myalgia [Recovered/Resolved]
  - Pain [Recovered/Resolved]
  - Osteoarthritis [Recovered/Resolved]
